FAERS Safety Report 16996725 (Version 1)
Quarter: 2019Q4

REPORT INFORMATION
  Report Type: Report from Study
  Country: FR (occurrence: FR)
  Receive Date: 20191105
  Receipt Date: 20191105
  Transmission Date: 20200122
  Serious: Yes (Death)
  Sender: FDA-Public Use
  Company Number: FR-PFIZER INC-2019474297

PATIENT
  Age: 62 Year

DRUGS (3)
  1. CARBOPLATIN. [Suspect]
     Active Substance: CARBOPLATIN
     Indication: PHARYNGEAL CANCER METASTATIC
     Dosage: UNK, CYCLIC
     Route: 042
  2. FLUOROURACIL. [Suspect]
     Active Substance: FLUOROURACIL
     Indication: PHARYNGEAL CANCER METASTATIC
     Dosage: UNK, CYCLIC
     Route: 042
  3. CETUXIMAB. [Suspect]
     Active Substance: CETUXIMAB
     Indication: PHARYNGEAL CANCER METASTATIC
     Dosage: UNK, CYCLIC
     Route: 042

REACTIONS (1)
  - Febrile neutropenia [Fatal]
